FAERS Safety Report 16752393 (Version 1)
Quarter: 2019Q3

REPORT INFORMATION
  Report Type: Spontaneous
  Country: FR (occurrence: FR)
  Receive Date: 20190828
  Receipt Date: 20190828
  Transmission Date: 20191005
  Serious: Yes (Hospitalization)
  Sender: FDA-Public Use
  Company Number: FR-TEVA-2019-FR-1096783

PATIENT
  Age: 84 Year
  Sex: Female
  Weight: 56 kg

DRUGS (11)
  1. DOXORUBICINE [Suspect]
     Active Substance: DOXORUBICIN
     Indication: COLORECTAL CANCER METASTATIC
     Route: 042
     Dates: start: 20190716, end: 20190716
  2. FUROSEMIDE. [Suspect]
     Active Substance: FUROSEMIDE
     Indication: HYPERTENSION
     Route: 048
  3. KETOPROFENE [Suspect]
     Active Substance: KETOPROFEN
     Indication: OSTEOARTHRITIS
     Route: 048
  4. AVASTIN [Suspect]
     Active Substance: BEVACIZUMAB
     Indication: COLORECTAL CANCER METASTATIC
     Route: 042
     Dates: start: 20190716, end: 20190716
  5. VERAPAMIL (CHLORHYDRATE DE) [Concomitant]
     Active Substance: VERAPAMIL HYDROCHLORIDE
  6. ZOPICLONE [Concomitant]
     Active Substance: ZOPICLONE
  7. OMEPRAZOLE. [Concomitant]
     Active Substance: OMEPRAZOLE
  8. ATORVASTATINE [Concomitant]
     Active Substance: ATORVASTATIN
  9. OFLOCET [Concomitant]
     Active Substance: OFLOXACIN
  10. SPIRONOLACTONE. [Suspect]
     Active Substance: SPIRONOLACTONE
     Indication: HYPERTENSION
     Dosage: UNSPECIFIED
     Route: 048
  11. CAMPTO [Suspect]
     Active Substance: IRINOTECAN
     Indication: COLORECTAL CANCER METASTATIC
     Route: 042
     Dates: start: 20190716, end: 20190716

REACTIONS (3)
  - Dehydration [Recovered/Resolved]
  - Diarrhoea [Recovered/Resolved]
  - Vomiting [Recovered/Resolved]

NARRATIVE: CASE EVENT DATE: 20190718
